FAERS Safety Report 15077181 (Version 3)
Quarter: 2018Q3

REPORT INFORMATION
  Report Type: Spontaneous
  Country: AT (occurrence: AT)
  Receive Date: 20180627
  Receipt Date: 20180801
  Transmission Date: 20181010
  Serious: Yes (Hospitalization, Disabling, Other)
  Sender: FDA-Public Use
  Company Number: AT-MYLANLABS-07P-009-0415585-00

PATIENT
  Age: 22 Year
  Sex: Female
  Weight: 97 kg

DRUGS (3)
  1. CARBAMAZEPINE. [Concomitant]
     Active Substance: CARBAMAZEPINE
     Indication: PRODUCT USED FOR UNKNOWN INDICATION
     Dosage: UNK
  2. VALPROIC ACID. [Suspect]
     Active Substance: VALPROIC ACID
     Indication: PARTIAL SEIZURES
     Dosage: 1500 MG, QD
     Dates: start: 1999, end: 2007
  3. LAMOTRIGINE. [Concomitant]
     Active Substance: LAMOTRIGINE
     Indication: PARTIAL SEIZURES
     Dosage: UNK

REACTIONS (10)
  - Metabolic disorder [Recovered/Resolved with Sequelae]
  - Visual field defect [Recovered/Resolved with Sequelae]
  - Weight increased [Recovered/Resolved with Sequelae]
  - Hyperammonaemia [Unknown]
  - Alopecia [Recovered/Resolved with Sequelae]
  - Hyperprolactinaemia [Recovered/Resolved with Sequelae]
  - Amenorrhoea [Recovered/Resolved with Sequelae]
  - Ammonia increased [Recovered/Resolved with Sequelae]
  - Polycystic ovaries [Recovered/Resolved with Sequelae]
  - Retinogram abnormal [Not Recovered/Not Resolved]

NARRATIVE: CASE EVENT DATE: 1999
